FAERS Safety Report 8549331-4 (Version None)
Quarter: 2012Q3

REPORT INFORMATION
  Report Type: 
  Country: None (occurrence: None)
  Receive Date: 20120730
  Receipt Date: 20120720
  Transmission Date: 20120928
  Serious: Yes (Other)
  Sender: FDA-Public Use
  Company Number: US-VERTEX PHARMACEUTICALS INC.-AE-2012-004599

PATIENT
  Sex: Female
  Weight: 62.652 kg

DRUGS (3)
  1. RIBAVIRIN [Concomitant]
     Indication: HEPATITIS C
     Dates: start: 20120112, end: 20120629
  2. INCIVEK [Suspect]
     Indication: HEPATITIS C
     Route: 048
     Dates: start: 20120112, end: 20120404
  3. PEGASYS [Concomitant]
     Indication: HEPATITIS C
     Route: 058
     Dates: start: 20120112, end: 20120629

REACTIONS (5)
  - THROMBOCYTOPENIA [None]
  - LEUKOPENIA [None]
  - ANAEMIA [None]
  - GINGIVAL BLEEDING [None]
  - EPISTAXIS [None]
